FAERS Safety Report 6233043-6 (Version None)
Quarter: 2009Q2

REPORT INFORMATION
  Report Type: 
  Country: None (occurrence: None)
  Receive Date: 20090617
  Receipt Date: 20090616
  Transmission Date: 20091009
  Serious: Yes (Death, Other)
  Sender: FDA-Public Use
  Company Number: JP-BAYER-200911437BYL

PATIENT
  Age: 74 Year
  Sex: Male
  Weight: 40 kg

DRUGS (5)
  1. NEXAVAR [Suspect]
     Indication: RENAL CELL CARCINOMA STAGE IV
     Dosage: TOTAL DAILY DOSE: 400 MG  UNIT DOSE: 200 MG
     Route: 048
     Dates: start: 20090502, end: 20090505
  2. RIKKUNSHI-TO [Concomitant]
     Dosage: UNIT DOSE: 2.5 G
     Route: 048
     Dates: start: 20090503
  3. HIRUDOID [Concomitant]
     Indication: PROPHYLAXIS
     Route: 061
     Dates: start: 20090503
  4. PASTARON [Concomitant]
     Indication: PROPHYLAXIS
     Route: 061
     Dates: start: 20090503
  5. MAGMITT [Concomitant]
     Dosage: UNIT DOSE: 330 MG
     Route: 048
     Dates: start: 20090514

REACTIONS (7)
  - ALANINE AMINOTRANSFERASE INCREASED [None]
  - ASPARTATE AMINOTRANSFERASE INCREASED [None]
  - BLOOD LACTATE DEHYDROGENASE INCREASED [None]
  - GENERAL PHYSICAL HEALTH DETERIORATION [None]
  - LIVER DISORDER [None]
  - MALIGNANT NEOPLASM PROGRESSION [None]
  - RENAL CELL CARCINOMA [None]
